FAERS Safety Report 7304933-8 (Version None)
Quarter: 2011Q1

REPORT INFORMATION
  Report Type: 
  Country: None (occurrence: None)
  Receive Date: 20110222
  Receipt Date: 20110208
  Transmission Date: 20110831
  Serious: Yes (Death)
  Sender: FDA-Public Use
  Company Number: DE-CELGENEUS-062-20785-10122333

PATIENT
  Sex: Male
  Weight: 62 kg

DRUGS (7)
  1. THALIDOMIDE [Suspect]
     Indication: MULTIPLE MYELOMA
     Route: 048
     Dates: start: 20100201
  2. PALLADONE [Concomitant]
     Route: 065
  3. PALLADONE [Concomitant]
     Route: 065
  4. ZOLEDRONATE [Concomitant]
     Route: 065
  5. NOVAMINSULFON [Concomitant]
     Route: 048
  6. THALIDOMIDE [Suspect]
     Route: 048
     Dates: start: 20100510, end: 20101112
  7. IMMUNE GLOBULIN NOS [Concomitant]
     Indication: INFECTION PROPHYLAXIS
     Route: 051

REACTIONS (1)
  - MULTIPLE MYELOMA [None]
